FAERS Safety Report 6686904-8 (Version None)
Quarter: 2010Q2

REPORT INFORMATION
  Report Type: 
  Country: None (occurrence: None)
  Receive Date: 20100416
  Receipt Date: 20100416
  Transmission Date: 20101027
  Serious: Yes (Disabling)
  Sender: FDA-Public Use
  Company Number: None

PATIENT
  Age: 43 Year
  Sex: Male
  Weight: 97.0698 kg

DRUGS (1)
  1. FEXOFENADINE [Suspect]
     Indication: SINUSITIS
     Dosage: 1 TAB DAILY 1
     Dates: start: 20100204, end: 20100210

REACTIONS (2)
  - AGEUSIA [None]
  - ANOSMIA [None]
